FAERS Safety Report 12926336 (Version 2)
Quarter: 2017Q1

REPORT INFORMATION
  Report Type: Spontaneous
  Country: DE (occurrence: DE)
  Receive Date: 20161109
  Receipt Date: 20170130
  Transmission Date: 20170428
  Serious: Yes (Hospitalization, Congenital Anomaly, Other)
  Sender: FDA-Public Use
  Company Number: DE-JNJFOC-20161027239

PATIENT
  Age: 0 Year
  Sex: Male
  Weight: 1.39 kg

DRUGS (4)
  1. XEPLION [Suspect]
     Active Substance: PALIPERIDONE PALMITATE
     Indication: SCHIZOPHRENIA
     Route: 064
  2. FOLIC ACID. [Concomitant]
     Active Substance: FOLIC ACID
     Indication: VITAMIN SUPPLEMENTATION
     Dosage: FROM 22.2 TO 22.2 GESTATIONAL WEEK
     Route: 064
     Dates: start: 201603
  3. XEPLION [Suspect]
     Active Substance: PALIPERIDONE PALMITATE
     Indication: SCHIZOPHRENIA
     Dosage: STARTED ON 7TH OR 14TH DEC-2015 ??UNTIL GW 31
     Route: 064
  4. BETAMETHASONE. [Concomitant]
     Active Substance: BETAMETHASONE
     Indication: MATERNAL THERAPY TO ENHANCE FOETAL LUNG MATURITY
     Dosage: 27.3 TO 27.3 GESTATIONAL WEEK
     Route: 064
     Dates: start: 20160420, end: 20160420

REACTIONS (8)
  - Low birth weight baby [Recovering/Resolving]
  - Cryptorchism [Unknown]
  - Premature baby [Recovered/Resolved]
  - Oligohydramnios [Unknown]
  - Small for dates baby [Recovering/Resolving]
  - Congenital umbilical hernia [Unknown]
  - Foetal growth restriction [Unknown]
  - Foetal exposure during pregnancy [Recovered/Resolved]

NARRATIVE: CASE EVENT DATE: 201512
